FAERS Safety Report 12546828 (Version 2)
Quarter: 2016Q3

REPORT INFORMATION
  Report Type: Spontaneous
  Country: US (occurrence: US)
  Receive Date: 20160711
  Receipt Date: 20160711
  Transmission Date: 20161109
  Serious: Yes (Other)
  Sender: FDA-Public Use
  Company Number: ALCN2016US004634

PATIENT
  Age: 17 Year
  Sex: Male

DRUGS (2)
  1. DORZOLAMIDE [Suspect]
     Active Substance: DORZOLAMIDE
     Indication: SUBRETINAL FLUID
     Dosage: 1 GTT, TID
     Route: 061
  2. DORZOLAMIDE [Suspect]
     Active Substance: DORZOLAMIDE
     Indication: CHORIORETINOPATHY

REACTIONS (4)
  - Chorioretinopathy [Recovered/Resolved]
  - Condition aggravated [Recovered/Resolved]
  - Drug ineffective for unapproved indication [Not Recovered/Not Resolved]
  - Product use issue [Recovered/Resolved]
